FAERS Safety Report 8034466-5 (Version None)
Quarter: 2012Q1

REPORT INFORMATION
  Report Type: 
  Country: None (occurrence: None)
  Receive Date: 20120110
  Receipt Date: 20120103
  Transmission Date: 20120608
  Serious: Yes (Hospitalization)
  Sender: FDA-Public Use
  Company Number: US-MPIJNJ-2012-00021

PATIENT
  Sex: Male
  Weight: 86 kg

DRUGS (3)
  1. PREDNISONE TAB [Suspect]
     Indication: MULTIPLE MYELOMA
     Dosage: 100 MG, CYCLIC
     Route: 048
     Dates: start: 20110418
  2. ALKERAN [Suspect]
     Indication: MULTIPLE MYELOMA
     Dosage: 12 MG, CYCLIC
     Route: 048
     Dates: start: 20110418
  3. VELCADE [Suspect]
     Indication: MULTIPLE MYELOMA
     Dosage: 1.3 MG/M2, 1/WEEK
     Route: 042
     Dates: start: 20110418

REACTIONS (1)
  - INGUINAL HERNIA, OBSTRUCTIVE [None]
